FAERS Safety Report 25087957 (Version 1)
Quarter: 2025Q1

REPORT INFORMATION
  Report Type: Spontaneous
  Country: AT (occurrence: AT)
  Receive Date: 20250318
  Receipt Date: 20250318
  Transmission Date: 20250409
  Serious: Yes (Other)
  Sender: ARGENX BVBA
  Company Number: AT-ARGENX-2025-ARGX-AT003163

PATIENT

DRUGS (2)
  1. VYVGART [Suspect]
     Active Substance: EFGARTIGIMOD ALFA-FCAB
     Indication: Product used for unknown indication
     Route: 042
  2. Cort [Concomitant]
     Indication: Product used for unknown indication
     Route: 065

REACTIONS (3)
  - Embolism [Recovering/Resolving]
  - Device related infection [Recovering/Resolving]
  - Drug ineffective [Unknown]
